FAERS Safety Report 18918165 (Version 1)
Quarter: 2021Q1

REPORT INFORMATION
  Report Type: Spontaneous
  Country: US (occurrence: US)
  Receive Date: 20210219
  Receipt Date: 20210219
  Transmission Date: 20210420
  Serious: Yes (Other)
  Sender: FDA-Public Use
  Company Number: US-009507513-2102USA007498

PATIENT
  Age: 34 Year
  Sex: Female
  Weight: 123.36 kg

DRUGS (1)
  1. NEXPLANON [Suspect]
     Active Substance: ETONOGESTREL
     Dosage: 1 IMPLANT

REACTIONS (5)
  - Pregnancy with implant contraceptive [Recovered/Resolved]
  - Complication of device insertion [Not Recovered/Not Resolved]
  - Device physical property issue [Unknown]
  - Unintended pregnancy [Recovered/Resolved]
  - Device difficult to use [Not Recovered/Not Resolved]

NARRATIVE: CASE EVENT DATE: 20210218
